FAERS Safety Report 17097180 (Version 1)
Quarter: 2019Q4

REPORT INFORMATION
  Report Type: Spontaneous
  Country: NO (occurrence: NO)
  Receive Date: 20191202
  Receipt Date: 20191202
  Transmission Date: 20200122
  Serious: Yes (Hospitalization, Disabling, Other)
  Sender: FDA-Public Use
  Company Number: NO-BRISTOL-MYERS SQUIBB COMPANY-BMS-2019-113469

PATIENT
  Age: 75 Year
  Sex: Male

DRUGS (3)
  1. OPDIVO [Suspect]
     Active Substance: NIVOLUMAB
     Indication: MALIGNANT MELANOMA
     Dosage: 480 MILLIGRAM, Q4WK
     Route: 042
     Dates: start: 20190809
  2. BACTRIM [Suspect]
     Active Substance: SULFAMETHOXAZOLE\TRIMETHOPRIM
     Indication: WOUND INFECTION
     Dosage: 1 DOSAGE FORM (DRUG STRENGTH: SULFAMETHOXAZOLE; 400MG, TRIMETHOPRIM; 80MG)
     Route: 048
     Dates: start: 201906
  3. DICLOCIL [Suspect]
     Active Substance: DICLOXACILLIN SODIUM
     Indication: WOUND INFECTION
     Dosage: 1 DOSAGE FORM, PRN
     Route: 048
     Dates: start: 201907

REACTIONS (1)
  - Acute kidney injury [Recovering/Resolving]
